FAERS Safety Report 7976638-1 (Version None)
Quarter: 2011Q4

REPORT INFORMATION
  Report Type: 
  Country: None (occurrence: None)
  Receive Date: 20111213
  Receipt Date: 20111030
  Transmission Date: 20120403
  Serious: No
  Sender: FDA-Public Use
  Company Number: US-AMGEN-USASP2011056381

PATIENT
  Age: 63 Year
  Sex: Female

DRUGS (1)
  1. ENBREL [Suspect]
     Indication: RHEUMATOID ARTHRITIS
     Dosage: 25 MG, 2 TIMES/WK
     Dates: start: 20091119

REACTIONS (5)
  - NERVE COMPRESSION [None]
  - BACK PAIN [None]
  - INTERVERTEBRAL DISC DISORDER [None]
  - ARTHRALGIA [None]
  - PAIN IN EXTREMITY [None]
